FAERS Safety Report 7888511-8 (Version None)
Quarter: 2011Q4

REPORT INFORMATION
  Report Type: 
  Country: None (occurrence: None)
  Receive Date: 20111103
  Receipt Date: 20111101
  Transmission Date: 20120403
  Serious: Yes (Death)
  Sender: FDA-Public Use
  Company Number: AU-B.I. PHARMACEUTICALS,INC./RIDGEFIELD-2011-AU-01045AU

PATIENT
  Sex: Male
  Weight: 65 kg

DRUGS (13)
  1. INDERAL [Concomitant]
     Dosage: 120 MG
  2. VENTOLIN [Concomitant]
     Dosage: PRN
  3. FLUTICASONE PROPIONATE/SALMETEROL [Concomitant]
     Dosage: PRN
  4. LIPEX [Concomitant]
     Dosage: 20 MG
  5. LASIX [Concomitant]
     Dosage: 40 MG
  6. DITROPAN [Concomitant]
     Dosage: 15 MG
  7. PERINDOPRIL ERBUMINE [Concomitant]
     Dosage: 4 MG
  8. DIGOXIN [Concomitant]
     Dosage: 62.5 MCG
  9. DURIDE [Concomitant]
     Dosage: 60 MG
  10. PRADAXA [Suspect]
     Indication: ATRIAL FIBRILLATION
     Dosage: 220 MG
     Dates: start: 20110711
  11. ZYLOPRIM [Concomitant]
     Dosage: 100 MG
  12. RABEPRAZOLE SODIUM [Concomitant]
     Dosage: 40 MG
  13. ALPHAPRESS [Concomitant]
     Dosage: 25 MG

REACTIONS (1)
  - DEATH [None]
